FAERS Safety Report 8456112 (Version 2)
Quarter: 2014Q1

REPORT INFORMATION
  Report Type: Report from Study
  Country: CA (occurrence: CA)
  Receive Date: 20120313
  Receipt Date: 20140127
  Transmission Date: 20141002
  Serious: Yes (Other)
  Sender: FDA-Public Use
  Company Number: CA-ROCHE-1044770

PATIENT
  Age: 67 Year
  Sex: Female
  Weight: 47.67 kg

DRUGS (4)
  1. RITUXAN [Suspect]
     Indication: RHEUMATOID ARTHRITIS
     Dosage: FREQUENCY : DAY 1 AND 15,?DATE OF LAST DOSE : 29/MAR/2012.
     Route: 042
     Dates: start: 20080805
  2. ESTRADOT [Concomitant]
     Route: 065
  3. PROMETRIUM [Concomitant]
  4. ULTRADOL [Concomitant]

REACTIONS (5)
  - Mental impairment [Not Recovered/Not Resolved]
  - Amnesia [Not Recovered/Not Resolved]
  - Photosensitivity reaction [Not Recovered/Not Resolved]
  - Nasopharyngitis [Recovered/Resolved]
  - Laryngitis [Not Recovered/Not Resolved]
